FAERS Safety Report 18172886 (Version 1)
Quarter: 2020Q3

REPORT INFORMATION
  Report Type: Spontaneous
  Country: IN (occurrence: IN)
  Receive Date: 20200820
  Receipt Date: 20200820
  Transmission Date: 20201103
  Serious: Yes (Hospitalization, Other)
  Sender: FDA-Public Use
  Company Number: IN-SUN PHARMACEUTICAL INDUSTRIES LTD-2020R1-257669

PATIENT
  Age: 67 Year
  Sex: Female

DRUGS (7)
  1. TELMISARTAN. [Suspect]
     Active Substance: TELMISARTAN
     Indication: HYPERTENSION
     Dosage: 40 MILLIGRAM, DAILY
     Route: 065
     Dates: start: 20180126
  2. CALCIUM [Concomitant]
     Active Substance: CALCIUM
     Indication: PRODUCT USED FOR UNKNOWN INDICATION
     Dosage: UNK
     Route: 065
  3. PANTOPRAZOLE [Concomitant]
     Active Substance: PANTOPRAZOLE
     Indication: PRODUCT USED FOR UNKNOWN INDICATION
     Dosage: 40 MILLIGRAM, DAILY
     Route: 065
  4. ASPIRIN/CLOPIDOGREL [Suspect]
     Active Substance: ASPIRIN\CLOPIDOGREL
     Indication: MOUTH HAEMORRHAGE
     Dosage: UNK
     Route: 065
  5. METOPROLOL. [Concomitant]
     Active Substance: METOPROLOL
     Indication: HYPERTENSION
     Dosage: 25 MILLIGRAM, DAILY
     Route: 065
  6. BENIDIPINE [Concomitant]
     Active Substance: BENIDIPINE
     Indication: PRODUCT USED FOR UNKNOWN INDICATION
     Dosage: 4 MILLIGRAM
     Route: 065
  7. CLOTRIMAZOLE. [Concomitant]
     Active Substance: CLOTRIMAZOLE
     Indication: PRODUCT USED FOR UNKNOWN INDICATION
     Dosage: UNK
     Route: 065

REACTIONS (3)
  - Drug ineffective [Unknown]
  - Angioedema [Recovered/Resolved]
  - Mouth ulceration [Recovered/Resolved]
